FAERS Safety Report 4475527-7 (Version None)
Quarter: 2004Q4

REPORT INFORMATION
  Report Type: 
  Country: None (occurrence: None)
  Receive Date: 20041014
  Receipt Date: 20041014
  Transmission Date: 20050328
  Serious: Yes (Hospitalization)
  Sender: FDA-Public Use
  Company Number: None

PATIENT
  Age: 56 Year
  Sex: Male
  Weight: 87.7 kg

DRUGS (6)
  1. NAPROXEN [Suspect]
     Indication: BACK PAIN
     Dosage: 250 MG BID ORAL
     Route: 048
  2. NAPROXEN [Suspect]
     Indication: INFLAMMATION
     Dosage: 250 MG BID ORAL
     Route: 048
  3. HYDROXYZINE [Concomitant]
  4. METHOCARBAMOL [Concomitant]
  5. RISPERIDONE [Concomitant]
  6. TRAZODONE HCL [Concomitant]

REACTIONS (9)
  - ABDOMINAL PAIN UPPER [None]
  - DYSPEPSIA [None]
  - FAECES DISCOLOURED [None]
  - GASTRITIS [None]
  - HAEMATOCRIT DECREASED [None]
  - HAEMOGLOBIN DECREASED [None]
  - HAEMORRHAGE [None]
  - MELAENA [None]
  - ULCER [None]
